FAERS Safety Report 4983692-8 (Version None)
Quarter: 2006Q2

REPORT INFORMATION
  Report Type: 
  Country: None (occurrence: None)
  Receive Date: 20060425
  Receipt Date: 20060425
  Transmission Date: 20061013
  Serious: Yes (Death, Hospitalization)
  Sender: FDA-Public Use
  Company Number: None

PATIENT
  Age: 84 Year
  Sex: Male
  Weight: 83 kg

DRUGS (7)
  1. WARFARIN SODIUM [Suspect]
     Indication: ATRIAL FIBRILLATION
     Dosage: 4 MG DAILY PO
  2. TYLENOL (CAPLET) [Concomitant]
  3. ASPIRIN [Concomitant]
  4. BISACODYL [Concomitant]
  5. FELODIPINE [Concomitant]
  6. RANITIDINE [Concomitant]
  7. SERTRALINE [Concomitant]

REACTIONS (7)
  - BACK PAIN [None]
  - COAGULOPATHY [None]
  - INTERNATIONAL NORMALISED RATIO INCREASED [None]
  - LUNG INFILTRATION [None]
  - PULMONARY ALVEOLAR HAEMORRHAGE [None]
  - RENAL FAILURE ACUTE [None]
  - RESPIRATORY FAILURE [None]
